FAERS Safety Report 7170034-5 (Version None)
Quarter: 2010Q4

REPORT INFORMATION
  Report Type: 
  Country: None (occurrence: None)
  Receive Date: 20101214
  Receipt Date: 20101214
  Transmission Date: 20110411
  Serious: Yes (Other)
  Sender: FDA-Public Use
  Company Number: None

PATIENT
  Sex: Female
  Weight: 68.0396 kg

DRUGS (1)
  1. VALPROIC ACID [Suspect]
     Dosage: 250MG TID

REACTIONS (1)
  - PRODUCT SUBSTITUTION ISSUE [None]
